FAERS Safety Report 9140717 (Version 1)
Quarter: 2013Q1

REPORT INFORMATION
  Report Type: Spontaneous
  Country: US (occurrence: None)
  Receive Date: 20130227
  Receipt Date: 20130227
  Transmission Date: 20140127
  Serious: Yes (Death)
  Sender: FDA-Public Use
  Company Number: SYM-2013-00162

PATIENT
  Age: 62 Year
  Sex: Female

DRUGS (5)
  1. CHLORDIAZEPOXIDE (CHLORDIAZEPOXIDE) (CHLORDIAZEPOXIDE) [Suspect]
     Indication: PRODUCT USED FOR UNKNOWN INDICATION
     Dosage: NOT REPORTED,  INGESTION
  2. CODEINE (CODEINE) (CODEINE) [Suspect]
     Indication: PRODUCT USED FOR UNKNOWN INDICATION
     Dosage: NOT REPORTED, ORAL
     Route: 048
  3. DESIPRAMINE (DESIPRAMINE) (DESIPRAMINE) [Suspect]
     Indication: PRODUCT USED FOR UNKNOWN INDICATION
     Dosage: NOT REPORTED, ORAL
     Route: 048
  4. LAXATIVE (SENNOSIDE A+B) (SENNOSIDE A+B) [Suspect]
     Indication: PRODUCT USED FOR UNKNOWN INDICATION
     Dosage: NOT REPORTED, ORAL
     Route: 048
  5. IBUPROFEN [Suspect]
     Indication: PRODUCT USED FOR UNKNOWN INDICATION
     Dosage: NOT REPORTED, OPHTHALMIC
     Route: 047

REACTIONS (2)
  - Poisoning [None]
  - Completed suicide [None]
